FAERS Safety Report 9685844 (Version 1)
Quarter: 2013Q4

REPORT INFORMATION
  Report Type: Spontaneous
  Country: CA (occurrence: CA)
  Receive Date: 20131113
  Receipt Date: 20131113
  Transmission Date: 20140711
  Serious: Yes (Death)
  Sender: FDA-Public Use
  Company Number: CA-SA-2013SA115462

PATIENT
  Age: 90 Year
  Sex: Male
  Weight: 71 kg

DRUGS (1)
  1. CEREZYME [Suspect]
     Indication: GAUCHER^S DISEASE
     Dosage: DOSE:33.8 UNIT(S)/KILOGRAM BODYWEIGHT
     Route: 042
     Dates: start: 19950718, end: 2009

REACTIONS (1)
  - Pneumonia [Fatal]
